FAERS Safety Report 24953956 (Version 1)
Quarter: 2025Q1

REPORT INFORMATION
  Report Type: Spontaneous
  Country: CH (occurrence: CH)
  Receive Date: 20250211
  Receipt Date: 20250211
  Transmission Date: 20250409
  Serious: No
  Sender: ALKEM
  Company Number: CH-ALKEM LABORATORIES LIMITED-CH-ALKEM-2024-04165

PATIENT
  Age: 46 Year
  Sex: Male

DRUGS (5)
  1. TRIAMCINOLONE ACETONIDE [Suspect]
     Active Substance: TRIAMCINOLONE ACETONIDE
     Indication: Alopecia scarring
     Route: 048
  2. CLINDAMYCIN [Suspect]
     Active Substance: CLINDAMYCIN
     Indication: Alopecia scarring
     Route: 065
  3. ISOTRETINOIN [Suspect]
     Active Substance: ISOTRETINOIN
     Indication: Alopecia scarring
     Route: 048
  4. RIFAMPIN [Suspect]
     Active Substance: RIFAMPIN
     Indication: Alopecia scarring
     Route: 065
  5. SULFAMETHOXAZOLE\TRIMETHOPRIM [Suspect]
     Active Substance: SULFAMETHOXAZOLE\TRIMETHOPRIM
     Indication: Alopecia scarring
     Route: 065

REACTIONS (1)
  - Treatment failure [Unknown]
